FAERS Safety Report 9547699 (Version 1)
Quarter: 2013Q3

REPORT INFORMATION
  Report Type: Spontaneous
  Country: JP (occurrence: JP)
  Receive Date: 20130924
  Receipt Date: 20130924
  Transmission Date: 20140515
  Serious: Yes (Death)
  Sender: FDA-Public Use
  Company Number: JP-COVIDIEN/TYCO HEALTHCARE/MALLINCKRODT-T201304427

PATIENT
  Age: 38 Year
  Sex: Female
  Weight: 49.8 kg

DRUGS (12)
  1. METHADONE [Suspect]
     Indication: CANCER PAIN
     Dosage: 45 MG, QD
     Route: 048
     Dates: start: 20130418, end: 20130426
  2. METHADONE [Suspect]
     Dosage: 15 MG (TITER), SINGLE
  3. OXYCODONE HYDROCHLORIDE [Concomitant]
     Dosage: 875 MG, UNK
     Route: 051
     Dates: start: 20130315, end: 20130417
  4. OXYCODONE HYDROCHLORIDE [Concomitant]
     Dosage: 750 UNK, UNK
     Route: 051
     Dates: start: 20130418
  5. FENTOS [Concomitant]
     Dosage: 24 MG, UNK
     Route: 062
     Dates: start: 20130401
  6. ANHIBA [Concomitant]
     Dosage: 180 MG, UNK
     Route: 054
     Dates: start: 20130321
  7. VOLTAREN                           /00372301/ [Concomitant]
     Dosage: 75 MG, UNK
     Route: 054
  8. TRYPTANOL                          /00002202/ [Concomitant]
     Dosage: 10 MG, UNK
     Route: 048
     Dates: start: 20130315
  9. DEPAS [Concomitant]
     Dosage: 0.5 MG, UNK
     Route: 048
     Dates: start: 20130403
  10. LASIX                              /00032601/ [Concomitant]
     Dosage: 40 MG, UNK
     Route: 051
  11. GASTER                             /00706001/ [Concomitant]
     Dosage: 20 MG, UNK
     Route: 051
  12. PREDONINE                          /00016201/ [Concomitant]
     Dosage: 60 MG, UNK
     Route: 051
     Dates: start: 20130326

REACTIONS (1)
  - Cervix carcinoma [Fatal]
